FAERS Safety Report 25940798 (Version 1)
Quarter: 2025Q4

REPORT INFORMATION
  Report Type: Report from Study
  Country: CA (occurrence: CA)
  Receive Date: 20251020
  Receipt Date: 20251020
  Transmission Date: 20260117
  Serious: Yes (Other)
  Sender: LUNDBECK
  Company Number: CA-LUNDBECK-DKLU4020636

PATIENT
  Age: 79 Year
  Sex: Female

DRUGS (1)
  1. VYEPTI [Suspect]
     Active Substance: EPTINEZUMAB-JJMR
     Indication: Migraine
     Dosage: 100 MILLIGRAM
     Route: 041
     Dates: start: 20250516

REACTIONS (3)
  - Lymphoma [Unknown]
  - Migraine [Unknown]
  - Vestibular migraine [Unknown]

NARRATIVE: CASE EVENT DATE: 20251001
